FAERS Safety Report 6062792-8 (Version None)
Quarter: 2009Q1

REPORT INFORMATION
  Report Type: 
  Country: None (occurrence: None)
  Receive Date: 20090203
  Receipt Date: 20090126
  Transmission Date: 20090719
  Serious: Yes (Death)
  Sender: FDA-Public Use
  Company Number: US-AVENTIS-200910756US

PATIENT
  Sex: Female

DRUGS (2)
  1. TAXOTERE [Suspect]
     Indication: BREAST CANCER
     Dosage: DOSE: UNK
  2. CYTOXAN [Suspect]
     Indication: BREAST CANCER
     Dosage: DOSE: UNK

REACTIONS (1)
  - PULMONARY HYPERTENSION [None]
